FAERS Safety Report 7533764-9 (Version None)
Quarter: 2011Q2

REPORT INFORMATION
  Report Type: 
  Country: None (occurrence: None)
  Receive Date: 20110608
  Receipt Date: 20110528
  Transmission Date: 20111010
  Serious: Yes (Other)
  Sender: FDA-Public Use
  Company Number: DE-UCBSA-034140

PATIENT
  Age: 12 Year
  Sex: Male

DRUGS (2)
  1. LAMOTRIGINE [Suspect]
     Dosage: UNKNOWN DOSE
  2. KEPPRA [Suspect]
     Dosage: UNKNOWN DOSE

REACTIONS (1)
  - PETIT MAL EPILEPSY [None]
